FAERS Safety Report 20922612 (Version 1)
Quarter: 2022Q2

REPORT INFORMATION
  Report Type: Spontaneous
  Country: AU (occurrence: AU)
  Receive Date: 20220607
  Receipt Date: 20220607
  Transmission Date: 20220721
  Serious: Yes (Other)
  Sender: FDA-Public Use
  Company Number: AU-BRISTOL-MYERS SQUIBB COMPANY-2022-045212

PATIENT
  Age: 7 Year
  Sex: Male

DRUGS (11)
  1. THALIDOMIDE [Suspect]
     Active Substance: THALIDOMIDE
     Indication: Choroid plexus carcinoma
  2. CARBOPLATIN [Suspect]
     Active Substance: CARBOPLATIN
     Indication: Choroid plexus carcinoma
  3. CELECOXIB [Suspect]
     Active Substance: CELECOXIB
     Indication: Choroid plexus carcinoma
  4. CISPLATIN [Suspect]
     Active Substance: CISPLATIN
     Indication: Choroid plexus carcinoma
  5. CYCLOPHOSPHAMIDE [Suspect]
     Active Substance: CYCLOPHOSPHAMIDE
     Indication: Choroid plexus carcinoma
  6. ETOPOSIDE [Suspect]
     Active Substance: ETOPOSIDE
     Indication: Choroid plexus carcinoma
  7. EVEROLIMUS [Suspect]
     Active Substance: EVEROLIMUS
     Indication: Choroid plexus carcinoma
  8. FENOFIBRATE [Suspect]
     Active Substance: FENOFIBRATE
     Indication: Choroid plexus carcinoma
  9. METHOTREXATE [Suspect]
     Active Substance: METHOTREXATE
     Indication: Choroid plexus carcinoma
  10. THIOTEPA [Suspect]
     Active Substance: THIOTEPA
     Indication: Choroid plexus carcinoma
  11. VINCRISTINE SULFATE [Suspect]
     Active Substance: VINCRISTINE SULFATE
     Indication: Choroid plexus carcinoma

REACTIONS (5)
  - Malignant neoplasm progression [Unknown]
  - Myelosuppression [Unknown]
  - Therapy partial responder [Unknown]
  - Thrombocytopenia [Unknown]
  - Intentional product use issue [Unknown]
